FAERS Safety Report 8890297 (Version 1)
Quarter: 2012Q4

REPORT INFORMATION
  Report Type: 
  Country: US (occurrence: US)
  Receive Date: 20121106
  Receipt Date: 20121106
  Transmission Date: 20130627
  Serious: No
  Sender: FDA-Public Use
  Company Number: US-009507513-1210USA007326

PATIENT
  Age: 53 Year
  Sex: Male

DRUGS (4)
  1. PROPECIA [Suspect]
     Indication: ALOPECIA
     Dosage: 1 mg, once a day
     Route: 048
     Dates: start: 2007, end: 201209
  2. VIAGRA [Concomitant]
  3. LEVITRA [Concomitant]
  4. CIALIS [Concomitant]

REACTIONS (4)
  - Semen volume decreased [Not Recovered/Not Resolved]
  - Semen analysis abnormal [Not Recovered/Not Resolved]
  - Erectile dysfunction [Not Recovered/Not Resolved]
  - Libido decreased [Not Recovered/Not Resolved]
